FAERS Safety Report 6532750-5 (Version None)
Quarter: 2010Q1

REPORT INFORMATION
  Report Type: 
  Country: None (occurrence: None)
  Receive Date: 20100111
  Receipt Date: 20100105
  Transmission Date: 20100710
  Serious: No
  Sender: FDA-Public Use
  Company Number: JP-ASTRAZENECA-2009SE26439

PATIENT
  Age: 78 Year
  Sex: Female
  Weight: 45 kg

DRUGS (2)
  1. CRESTOR [Suspect]
     Indication: HYPERLIPIDAEMIA
     Route: 048
     Dates: start: 20090401, end: 20090415
  2. SEIBULE [Concomitant]
     Indication: DIABETES MELLITUS
     Route: 048
     Dates: start: 20080206

REACTIONS (1)
  - LIP OEDEMA [None]
